FAERS Safety Report 6845297-3 (Version None)
Quarter: 2010Q3

REPORT INFORMATION
  Report Type: 
  Country: None (occurrence: None)
  Receive Date: 20100715
  Receipt Date: 20100708
  Transmission Date: 20110219
  Serious: Yes (Hospitalization, Other)
  Sender: FDA-Public Use
  Company Number: US-SANOFI-AVENTIS-A03200900742

PATIENT
  Age: 80 Year
  Sex: Female
  Weight: 64.85 kg

DRUGS (17)
  1. PLAVIX [Suspect]
     Indication: STENT PLACEMENT
     Dosage: UNIT DOSE: 75 MG
     Route: 048
     Dates: start: 20031201, end: 20090125
  2. PLAVIX [Suspect]
     Indication: THROMBOSIS PROPHYLAXIS
     Dosage: UNIT DOSE: 75 MG
     Route: 048
     Dates: start: 20031201, end: 20090125
  3. PLAVIX [Suspect]
     Indication: PROPHYLAXIS
     Dosage: UNIT DOSE: 75 MG
     Route: 048
     Dates: start: 20031201, end: 20090125
  4. PLAVIX [Suspect]
     Dosage: UNIT DOSE: 75 MG
     Route: 048
     Dates: start: 20090101, end: 20091029
  5. PLAVIX [Suspect]
     Dosage: UNIT DOSE: 75 MG
     Route: 048
     Dates: start: 20090101, end: 20091029
  6. PLAVIX [Suspect]
     Dosage: UNIT DOSE: 75 MG
     Route: 048
     Dates: start: 20090101, end: 20091029
  7. PLAVIX [Suspect]
     Route: 048
  8. PLAVIX [Suspect]
     Route: 048
  9. PLAVIX [Suspect]
     Route: 048
  10. ASPIRIN [Suspect]
     Indication: STENT PLACEMENT
     Route: 065
     Dates: start: 20050101, end: 20090125
  11. ZOCOR [Concomitant]
     Route: 065
  12. PREDNISONE [Concomitant]
  13. DIOVANE [Concomitant]
  14. RANITIDINE [Concomitant]
  15. NORVASC [Concomitant]
  16. CRESTOR [Concomitant]
  17. TOPROL-XL [Concomitant]

REACTIONS (6)
  - DEHYDRATION [None]
  - EYE HAEMORRHAGE [None]
  - GASTRIC ULCER HAEMORRHAGE [None]
  - HYPOTENSION [None]
  - MELAENA [None]
  - VAGINAL HAEMORRHAGE [None]
